FAERS Safety Report 19689998 (Version 1)
Quarter: 2021Q3

REPORT INFORMATION
  Report Type: Spontaneous
  Country: US (occurrence: US)
  Receive Date: 20210811
  Receipt Date: 20210811
  Transmission Date: 20211014
  Serious: No
  Sender: FDA-Public Use
  Company Number: None

PATIENT
  Age: 60 Year
  Sex: Female
  Weight: 85 kg

DRUGS (1)
  1. TOPOTECAN [Suspect]
     Active Substance: TOPOTECAN HYDROCHLORIDE
     Dates: end: 20210416

REACTIONS (8)
  - Vomiting [None]
  - Platelet count decreased [None]
  - Fatigue [None]
  - Nausea [None]
  - Pain [None]
  - Neutrophil count decreased [None]
  - White blood cell count decreased [None]
  - Dizziness [None]

NARRATIVE: CASE EVENT DATE: 20210419
